FAERS Safety Report 15546740 (Version 1)
Quarter: 2018Q4

REPORT INFORMATION
  Report Type: Report from Study
  Country: US (occurrence: US)
  Receive Date: 20181024
  Receipt Date: 20181024
  Transmission Date: 20190205
  Serious: Yes (Hospitalization, Other)
  Sender: FDA-Public Use
  Company Number: US-MALLINCKRODT-T201803450

PATIENT
  Sex: Male

DRUGS (2)
  1. REPOSITORY CORTICOTROPIN INJECTION [Suspect]
     Active Substance: CORTICOTROPIN
     Indication: NEPHROTIC SYNDROME
     Dosage: 40 UNITS/.5ML, 2 TIMES PER WEEK FOR 2 WEEKS
     Route: 058
     Dates: start: 20180804, end: 2018
  2. REPOSITORY CORTICOTROPIN INJECTION [Suspect]
     Active Substance: CORTICOTROPIN
     Dosage: 80 UNITS/0.5 ML, 2 TIMES PER WEEK (SATURDAY/TUESDAY)
     Route: 058
     Dates: start: 201808, end: 201809

REACTIONS (9)
  - Blood glucose increased [Not Recovered/Not Resolved]
  - Injection site haemorrhage [Recovering/Resolving]
  - Dialysis [Unknown]
  - Injection site bruising [Not Recovered/Not Resolved]
  - Blood urea nitrogen/creatinine ratio increased [Unknown]
  - Product complaint [Unknown]
  - Gait disturbance [Not Recovered/Not Resolved]
  - Peripheral swelling [Not Recovered/Not Resolved]
  - Cellulitis [Not Recovered/Not Resolved]

NARRATIVE: CASE EVENT DATE: 2018
